FAERS Safety Report 6584572-7 (Version None)
Quarter: 2010Q1

REPORT INFORMATION
  Report Type: 
  Country: None (occurrence: None)
  Receive Date: 20100217
  Receipt Date: 20100209
  Transmission Date: 20100710
  Serious: Yes (Other)
  Sender: FDA-Public Use
  Company Number: US-TEVA-204155USA

PATIENT
  Sex: Female

DRUGS (3)
  1. CLARAVIS [Suspect]
     Dosage: 40 MG BID
     Route: 048
     Dates: start: 20090303, end: 20090508
  2. ORAL CONTRACEPTIVE [Concomitant]
  3. ISOMETH-CAFF APAP [Concomitant]
     Indication: MIGRAINE

REACTIONS (2)
  - MIGRAINE [None]
  - UNINTENDED PREGNANCY [None]
